FAERS Safety Report 23991699 (Version 1)
Quarter: 2024Q2

REPORT INFORMATION
  Report Type: Spontaneous
  Country: DE (occurrence: DE)
  Receive Date: 20240619
  Receipt Date: 20240619
  Transmission Date: 20240715
  Serious: Yes (Death, Other)
  Sender: FDA-Public Use
  Company Number: None

PATIENT
  Age: 81 Year
  Sex: Female

DRUGS (6)
  1. DICLOFENAC [Interacting]
     Active Substance: DICLOFENAC
     Indication: Arthritis
     Dosage: UNK
     Route: 065
  2. DICLOFENAC [Interacting]
     Active Substance: DICLOFENAC
     Indication: Arthritis
  3. METHOTREXATE [Interacting]
     Active Substance: METHOTREXATE
     Indication: Arthritis
     Dosage: 15 MG
     Route: 065
  4. METHOTREXATE [Interacting]
     Active Substance: METHOTREXATE
     Indication: Arthritis
  5. METAMIZOLE [Interacting]
     Active Substance: METAMIZOLE
     Indication: Arthritis
     Dosage: UNK
     Route: 065
  6. METAMIZOLE [Interacting]
     Active Substance: METAMIZOLE
     Indication: Arthritis

REACTIONS (13)
  - Myelosuppression [Fatal]
  - Haemorrhage subcutaneous [Fatal]
  - White blood cell count decreased [Fatal]
  - Drug interaction [Fatal]
  - Skin haemorrhage [Fatal]
  - Ecchymosis [Fatal]
  - Agranulocytosis [Fatal]
  - Haemorrhagic diathesis [Fatal]
  - Mucosal haemorrhage [Fatal]
  - Gastritis haemorrhagic [Fatal]
  - Pneumonia [Fatal]
  - Pneumonia [Fatal]
  - Bone marrow disorder [Fatal]
